FAERS Safety Report 9227950 (Version 1)
Quarter: 2013Q2

REPORT INFORMATION
  Report Type: Spontaneous
  Country: US (occurrence: US)
  Receive Date: 20130412
  Receipt Date: 20130412
  Transmission Date: 20140414
  Serious: Yes (Hospitalization)
  Sender: FDA-Public Use
  Company Number: US-TARO-2013P1004436

PATIENT
  Age: 66 Year
  Sex: Female
  Weight: 54.7 kg

DRUGS (1)
  1. WARFARIN SODIUM TABLETS USP 3MG [Suspect]
     Indication: MITRAL VALVE REPLACEMENT
     Route: 048

REACTIONS (5)
  - Cough [Unknown]
  - Chest pain [Unknown]
  - Insomnia [Unknown]
  - International normalised ratio increased [Unknown]
  - Product quality issue [None]
